FAERS Safety Report 9221514 (Version 1)
Quarter: 2013Q2

REPORT INFORMATION
  Report Type: Spontaneous
  Country: US (occurrence: None)
  Receive Date: 20130408
  Receipt Date: 20130408
  Transmission Date: 20140414
  Serious: Yes (Other)
  Sender: FDA-Public Use
  Company Number: None

PATIENT
  Age: 22 Year
  Sex: Male
  Weight: 80.74 kg

DRUGS (1)
  1. ASACOL HD [Suspect]
     Indication: COLITIS ULCERATIVE
     Route: 048
     Dates: start: 20130122, end: 20130130

REACTIONS (3)
  - Blood alkaline phosphatase increased [None]
  - Aspartate aminotransferase increased [None]
  - Alanine aminotransferase increased [None]
